FAERS Safety Report 11122411 (Version 1)
Quarter: 2015Q2

REPORT INFORMATION
  Report Type: Spontaneous
  Country: US (occurrence: None)
  Receive Date: 20150518
  Receipt Date: 20150518
  Transmission Date: 20150821
  Serious: Yes (Disabling)
  Sender: FDA-Public Use
  Company Number: None

PATIENT
  Age: 27 Year
  Sex: Male
  Weight: 65 kg

DRUGS (2)
  1. MIRTAZAPINE 15 MG [Suspect]
     Active Substance: MIRTAZAPINE
  2. VENLAFAXINE [Suspect]
     Active Substance: VENLAFAXINE HYDROCHLORIDE

REACTIONS (5)
  - Male sexual dysfunction [None]
  - Sexual dysfunction [None]
  - Spermatozoa abnormal [None]
  - Erectile dysfunction [None]
  - Male orgasmic disorder [None]

NARRATIVE: CASE EVENT DATE: 20120512
